FAERS Safety Report 4718026-7 (Version None)
Quarter: 2005Q3

REPORT INFORMATION
  Report Type: 
  Country: None (occurrence: None)
  Receive Date: 20050719
  Receipt Date: 20050125
  Transmission Date: 20060218
  Serious: Yes (Other)
  Sender: FDA-Public Use
  Company Number: 2005022243

PATIENT
  Age: 51 Year
  Sex: Male

DRUGS (2)
  1. CELEBREX [Suspect]
     Indication: ILL-DEFINED DISORDER
     Dosage: (THERAPY DATES: 3 YEARS AGO - UNKNOWN)
  2. ATORVASTATIN [Concomitant]

REACTIONS (1)
  - MYOCARDIAL INFARCTION [None]
